FAERS Safety Report 8442740-3 (Version None)
Quarter: 2012Q2

REPORT INFORMATION
  Report Type: 
  Country: None (occurrence: None)
  Receive Date: 20120615
  Receipt Date: 20120608
  Transmission Date: 20120825
  Serious: Yes (Hospitalization)
  Sender: FDA-Public Use
  Company Number: US-US-EMD SERONO, INC.-7099217

PATIENT
  Sex: Male
  Weight: 70 kg

DRUGS (3)
  1. ACETAMINOPHEN [Concomitant]
     Indication: PREMEDICATION
  2. AMPYRA [Concomitant]
     Indication: MULTIPLE SCLEROSIS
  3. REBIF [Suspect]
     Indication: MULTIPLE SCLEROSIS
     Route: 058
     Dates: start: 20110421

REACTIONS (2)
  - DEHYDRATION [None]
  - MULTIPLE SCLEROSIS RELAPSE [None]
